FAERS Safety Report 21089419 (Version 1)
Quarter: 2022Q3

REPORT INFORMATION
  Report Type: Spontaneous
  Country: US (occurrence: US)
  Receive Date: 20220715
  Receipt Date: 20220715
  Transmission Date: 20221027
  Serious: Yes (Hospitalization)
  Sender: FDA-Public Use
  Company Number: US-ELI_LILLY_AND_COMPANY-US202207002695

PATIENT
  Sex: Male

DRUGS (1)
  1. BEBTELOVIMAB [Suspect]
     Active Substance: BEBTELOVIMAB
     Indication: COVID-19
     Dosage: UNK UNK, UNKNOWN
     Route: 065
     Dates: start: 20220624, end: 20220624

REACTIONS (9)
  - Dehydration [Unknown]
  - Acute kidney injury [Not Recovered/Not Resolved]
  - Tremor [Unknown]
  - Disorientation [Unknown]
  - Blood pressure decreased [Recovered/Resolved]
  - Somnolence [Unknown]
  - Hypersomnia [Unknown]
  - Memory impairment [Not Recovered/Not Resolved]
  - Decreased appetite [Unknown]

NARRATIVE: CASE EVENT DATE: 20220627
